FAERS Safety Report 25300111 (Version 1)
Quarter: 2025Q2

REPORT INFORMATION
  Report Type: Spontaneous
  Country: US (occurrence: None)
  Receive Date: 20250510
  Receipt Date: 20250510
  Transmission Date: 20250717
  Serious: No
  Sender: FDA-CTU
  Company Number: None

PATIENT
  Age: 37 Year
  Sex: Female
  Weight: 99 kg

DRUGS (11)
  1. EMGALITY [Suspect]
     Active Substance: GALCANEZUMAB-GNLM
     Indication: Migraine with aura
     Route: 030
  2. Nadolol, [Concomitant]
  3. guanfacine, [Concomitant]
  4. protonix, [Concomitant]
  5. magnesium, [Concomitant]
  6. b12, [Concomitant]
  7. vitamin d, [Concomitant]
  8. Flonase, [Concomitant]
  9. lamictal, [Concomitant]
  10. metformin, [Concomitant]
  11. AZELASTINE [Concomitant]
     Active Substance: AZELASTINE

REACTIONS (4)
  - Injection site reaction [None]
  - Dermatitis contact [None]
  - Erythema [None]
  - Pruritus [None]

NARRATIVE: CASE EVENT DATE: 20250101
